FAERS Safety Report 17462266 (Version 2)
Quarter: 2020Q1

REPORT INFORMATION
  Report Type: Spontaneous
  Country: US (occurrence: US)
  Receive Date: 20200226
  Receipt Date: 20200326
  Transmission Date: 20200409
  Serious: Yes (Other)
  Sender: FDA-Public Use
  Company Number: US-NOVOPROD-703388

PATIENT
  Sex: Female

DRUGS (1)
  1. SAXENDA [Suspect]
     Active Substance: LIRAGLUTIDE
     Indication: OBESITY
     Dosage: LOW DOSE
     Route: 058
     Dates: start: 201911, end: 201911

REACTIONS (3)
  - Condition aggravated [Recovered/Resolved]
  - Parkinsonism [Recovering/Resolving]
  - Crying [Recovered/Resolved]

NARRATIVE: CASE EVENT DATE: 201911
